FAERS Safety Report 10029351 (Version 4)
Quarter: 2014Q4

REPORT INFORMATION
  Report Type: Spontaneous
  Country: AU (occurrence: AU)
  Receive Date: 20140321
  Receipt Date: 20141107
  Transmission Date: 20150528
  Serious: Yes (Hospitalization, Other)
  Sender: FDA-Public Use
  Company Number: AU-ABBVIE-14K-008-1214093-00

PATIENT
  Sex: Male

DRUGS (4)
  1. LUCRIN [Suspect]
     Active Substance: LEUPROLIDE ACETATE
     Indication: PROSTATE CANCER
     Route: 058
     Dates: start: 201402
  2. COSUDEX [Suspect]
     Active Substance: BICALUTAMIDE
     Indication: PRODUCT USED FOR UNKNOWN INDICATION
     Route: 065
     Dates: start: 20140303
  3. ASPIRIN. [Concomitant]
     Active Substance: ASPIRIN
     Indication: PRODUCT USED FOR UNKNOWN INDICATION
  4. CARTIA XT [Concomitant]
     Active Substance: DILTIAZEM HYDROCHLORIDE
     Indication: CHEST PAIN
     Route: 048
     Dates: start: 20140212

REACTIONS (6)
  - Peripheral swelling [Unknown]
  - Thrombophlebitis superficial [Recovering/Resolving]
  - Thrombosis [Recovered/Resolved]
  - Pain in extremity [Unknown]
  - Erythema [Unknown]
  - Muscle atrophy [Unknown]

NARRATIVE: CASE EVENT DATE: 2014
